FAERS Safety Report 20501640 (Version 1)
Quarter: 2022Q1

REPORT INFORMATION
  Report Type: Spontaneous
  Country: GB (occurrence: GB)
  Receive Date: 20220222
  Receipt Date: 20220222
  Transmission Date: 20220423
  Serious: Yes (Other)
  Sender: FDA-Public Use
  Company Number: GB-MHRA-MED-202202140931249760-2TSTE

PATIENT
  Age: 41 Year
  Sex: Female
  Weight: 86 kg

DRUGS (1)
  1. TYSABRI [Suspect]
     Active Substance: NATALIZUMAB
     Indication: Multiple sclerosis
     Route: 065
     Dates: start: 20211229, end: 20220126

REACTIONS (5)
  - Rash erythematous [Recovered/Resolved]
  - Throat irritation [Recovered/Resolved]
  - Chest pain [Recovered/Resolved]
  - Dry throat [Recovered/Resolved]
  - Urticaria [Recovered/Resolved]

NARRATIVE: CASE EVENT DATE: 20220126
